FAERS Safety Report 21552921 (Version 4)
Quarter: 2023Q1

REPORT INFORMATION
  Report Type: Other
  Country: CN (occurrence: None)
  Receive Date: 20221104
  Receipt Date: 20230207
  Transmission Date: 20230418
  Serious: Yes (Death, Hospitalization, Other)
  Sender: FDA-Public Use
  Company Number: CN-ROCHE-2096164

PATIENT
  Age: 50 Year
  Sex: Male
  Weight: 68 kg

DRUGS (1)
  1. AVASTIN [Suspect]
     Active Substance: BEVACIZUMAB
     Indication: Colon cancer
     Dosage: FORM OF ADMIN: 100 MG
     Route: 041
     Dates: start: 20170923

REACTIONS (10)
  - Biliary obstruction [Unknown]
  - Liver function test abnormal [Unknown]
  - Haemorrhoids [Unknown]
  - Adverse drug reaction [Unknown]
  - Hepatic lesion [Not Recovered/Not Resolved]
  - Splenic lesion [Not Recovered/Not Resolved]
  - Lymphadenopathy [Not Recovered/Not Resolved]
  - Retroperitoneal lymphadenopathy [Not Recovered/Not Resolved]
  - Jaundice [Unknown]
  - Condition aggravated [Fatal]

NARRATIVE: CASE EVENT DATE: 20211122
